FAERS Safety Report 6228841-9 (Version None)
Quarter: 2009Q2

REPORT INFORMATION
  Report Type: 
  Country: None (occurrence: None)
  Receive Date: 20090615
  Receipt Date: 20070516
  Transmission Date: 20091009
  Serious: Yes (Hospitalization)
  Sender: FDA-Public Use
  Company Number: US-ASTRAZENECA-2006UW24977

PATIENT
  Age: 10072 Day
  Sex: Male
  Weight: 101.2 kg

DRUGS (12)
  1. SEROQUEL [Suspect]
     Indication: BIPOLAR DISORDER
     Route: 048
     Dates: start: 20020101
  2. SEROQUEL [Suspect]
     Indication: SLEEP DISORDER
     Route: 048
     Dates: start: 20020101
  3. SEROQUEL [Suspect]
     Indication: ANXIETY
     Route: 048
     Dates: start: 20020101
  4. SEROQUEL [Suspect]
     Route: 048
     Dates: start: 20031202
  5. SEROQUEL [Suspect]
     Route: 048
     Dates: start: 20031202
  6. SEROQUEL [Suspect]
     Route: 048
     Dates: start: 20031202
  7. AXERT [Concomitant]
     Route: 048
     Dates: start: 20031202
  8. ELAVIL [Concomitant]
     Route: 048
  9. DEPAKOTE [Concomitant]
     Dosage: 500 MG-1500 MG
     Route: 048
     Dates: start: 20031202
  10. ROBAXIN [Concomitant]
     Indication: HEADACHE
     Route: 048
     Dates: start: 20031202
  11. AMBIEN [Concomitant]
     Indication: SLEEP DISORDER
     Route: 048
     Dates: start: 20050118
  12. PREVACID [Concomitant]
     Route: 048

REACTIONS (7)
  - BLOOD CHOLESTEROL INCREASED [None]
  - BLOOD PRESSURE [None]
  - BLOOD TRIGLYCERIDES INCREASED [None]
  - DIABETES MELLITUS [None]
  - HYPERGLYCAEMIA [None]
  - HYPERLIPIDAEMIA [None]
  - TYPE 1 DIABETES MELLITUS [None]
